FAERS Safety Report 24685765 (Version 1)
Quarter: 2024Q4

REPORT INFORMATION
  Report Type: Spontaneous
  Country: TR (occurrence: TR)
  Receive Date: 20241202
  Receipt Date: 20241202
  Transmission Date: 20250115
  Serious: Yes (Death)
  Sender: EMD SERONO INC
  Company Number: TR-Merck Healthcare KGaA-2024063198

PATIENT
  Sex: Male

DRUGS (1)
  1. AVELUMAB [Suspect]
     Active Substance: AVELUMAB
     Indication: Product used for unknown indication

REACTIONS (1)
  - Sepsis [Fatal]
